FAERS Safety Report 5119833-1 (Version None)
Quarter: 2006Q3

REPORT INFORMATION
  Report Type: 
  Country: None (occurrence: None)
  Receive Date: 20060928
  Receipt Date: 20060922
  Transmission Date: 20061208
  Serious: Yes (Other)
  Sender: FDA-Public Use
  Company Number: 2006114255

PATIENT
  Age: 14 Year
  Sex: Male

DRUGS (1)
  1. VISINE EYE DROPS [Suspect]
     Dosage: 2 DROPS ONCE, ORAL
     Route: 048
     Dates: start: 20060901, end: 20060901

REACTIONS (3)
  - DIARRHOEA [None]
  - LOSS OF CONSCIOUSNESS [None]
  - VOMITING [None]
